FAERS Safety Report 5698192-X (Version None)
Quarter: 2008Q2

REPORT INFORMATION
  Report Type: 
  Country: None (occurrence: None)
  Receive Date: 20080408
  Receipt Date: 20080326
  Transmission Date: 20081010
  Serious: No
  Sender: FDA-Public Use
  Company Number: JP-PFIZER INC-2008024428

PATIENT
  Age: 65 Year
  Sex: Male
  Weight: 52 kg

DRUGS (2)
  1. AMLODIN [Suspect]
     Indication: HYPERTENSION
     Dosage: DAILY DOSE:10MG-FREQ:QD
     Route: 048
  2. KLACID [Suspect]
     Dosage: DAILY DOSE:400MG
     Route: 048
     Dates: start: 20080130, end: 20080305

REACTIONS (9)
  - BLOOD CREATININE INCREASED [None]
  - BLOOD UREA INCREASED [None]
  - DEHYDRATION [None]
  - DRUG INTERACTION [None]
  - HYPOTENSION [None]
  - LARGE INTESTINE CARCINOMA [None]
  - MALNUTRITION [None]
  - PNEUMONIA [None]
  - RECURRENT CANCER [None]
